FAERS Safety Report 11881211 (Version 1)
Quarter: 2015Q4

REPORT INFORMATION
  Report Type: Spontaneous
  Country: US (occurrence: US)
  Receive Date: 20151231
  Receipt Date: 20151231
  Transmission Date: 20160305
  Serious: Yes (Other)
  Sender: FDA-Public Use
  Company Number: US-BEH-2015057195

PATIENT
  Sex: Female
  Weight: 54 kg

DRUGS (21)
  1. SODIUM CHLORIDE. [Concomitant]
     Active Substance: SODIUM CHLORIDE
  2. CITRACAL +D [Concomitant]
  3. OXYGEN. [Concomitant]
     Active Substance: OXYGEN
  4. NEXIUM [Concomitant]
     Active Substance: ESOMEPRAZOLE MAGNESIUM
  5. ZEMAIRA [Suspect]
     Active Substance: .ALPHA.1-PROTEINASE INHIBITOR HUMAN
     Indication: ALPHA-1 ANTI-TRYPSIN DEFICIENCY
     Dosage: 100 MG/VL
     Route: 042
     Dates: start: 20101118
  6. PROBIOTIC [Concomitant]
     Active Substance: PROBIOTICS NOS
  7. SIMBRINZA [Concomitant]
     Active Substance: BRIMONIDINE TARTRATE\BRINZOLAMIDE
  8. MAGNESIUM [Concomitant]
     Active Substance: MAGNESIUM
  9. PREDNISONE. [Concomitant]
     Active Substance: PREDNISONE
  10. BENICAR [Concomitant]
     Active Substance: OLMESARTAN MEDOXOMIL
  11. VITAMIN D [Concomitant]
     Active Substance: CHOLECALCIFEROL
  12. FERROUS SULFATE [Concomitant]
     Active Substance: FERROUS SULFATE\FERROUS SULFATE, DRIED
  13. REMERON [Concomitant]
     Active Substance: MIRTAZAPINE
  14. BISOPROLOL [Concomitant]
     Active Substance: BISOPROLOL
  15. SULFASALAZINE. [Concomitant]
     Active Substance: SULFASALAZINE
  16. EPIPEN [Concomitant]
     Active Substance: EPINEPHRINE
  17. LUMIGAN [Concomitant]
     Active Substance: BIMATOPROST
  18. PROAIR HFA [Concomitant]
     Active Substance: ALBUTEROL SULFATE
  19. SYNTHROID [Concomitant]
     Active Substance: LEVOTHYROXINE SODIUM
  20. SEREVENT DISKUS [Concomitant]
     Active Substance: SALMETEROL XINAFOATE
  21. SPIRIVA [Concomitant]
     Active Substance: TIOTROPIUM BROMIDE MONOHYDRATE

REACTIONS (1)
  - Lung infection [Unknown]
